FAERS Safety Report 14862161 (Version 3)
Quarter: 2018Q3

REPORT INFORMATION
  Report Type: Spontaneous
  Country: JP (occurrence: JP)
  Receive Date: 20180508
  Receipt Date: 20180703
  Transmission Date: 20181010
  Serious: Yes (Other)
  Sender: FDA-Public Use
  Company Number: JP-BAYER-2017-228397

PATIENT
  Age: 7 Month
  Sex: Male
  Weight: 15 kg

DRUGS (4)
  1. KOGENATE FS [Suspect]
     Active Substance: ANTIHEMOPHILIC FACTOR, HUMAN RECOMBINANT
     Indication: FACTOR VIII DEFICIENCY
     Dosage: 32 IU/KG, QOD
     Route: 041
     Dates: start: 20170501, end: 20170703
  2. PHENOBARBITAL. [Concomitant]
     Active Substance: PHENOBARBITAL
  3. KOGENATE FS [Suspect]
     Active Substance: ANTIHEMOPHILIC FACTOR, HUMAN RECOMBINANT
     Indication: FACTOR VIII DEFICIENCY
     Dosage: 750 IU, QOD
     Route: 041
     Dates: end: 20150501
  4. KOGENATE FS [Suspect]
     Active Substance: ANTIHEMOPHILIC FACTOR, HUMAN RECOMBINANT
     Indication: FACTOR VIII DEFICIENCY
     Dosage: 1000 IU/KG, TIW,ITI
     Route: 041
     Dates: start: 20130501

REACTIONS (2)
  - Anti factor VIII antibody positive [Recovered/Resolved]
  - Haemarthrosis [None]
